FAERS Safety Report 6561169-6 (Version None)
Quarter: 2010Q1

REPORT INFORMATION
  Report Type: 
  Country: None (occurrence: None)
  Receive Date: 20100130
  Receipt Date: 20091001
  Transmission Date: 20100710
  Serious: No
  Sender: FDA-Public Use
  Company Number: US-ABBOTT-09P-163-0600636-00

PATIENT
  Sex: Female
  Weight: 47.67 kg

DRUGS (3)
  1. HUMIRA [Suspect]
     Indication: CROHN'S DISEASE
     Dates: start: 20090917, end: 20090917
  2. HUMIRA [Suspect]
     Dates: start: 20091001, end: 20091001
  3. NUVARING [Concomitant]
     Indication: CONTRACEPTION

REACTIONS (2)
  - INJECTION SITE PAIN [None]
  - NASOPHARYNGITIS [None]
